FAERS Safety Report 8854776 (Version 1)
Quarter: 2012Q4

REPORT INFORMATION
  Report Type: 
  Country: US (occurrence: US)
  Receive Date: 20121023
  Receipt Date: 20121023
  Transmission Date: 20130627
  Serious: No
  Sender: FDA-Public Use
  Company Number: US-BAYER-2012-110751

PATIENT
  Sex: Female

DRUGS (5)
  1. ALEVE CAPLET/TABLET,MIDOL EXTENDED RELIEF CAPLET [Suspect]
     Indication: ANALGESIC THERAPY
     Dosage: UNK
     Route: 048
     Dates: start: 20121016, end: 20121016
  2. ONE-A-DAY [Concomitant]
  3. ATENOLOL [Concomitant]
  4. HYZAAR [Concomitant]
  5. LYRICA [Concomitant]

REACTIONS (1)
  - Abdominal pain [Not Recovered/Not Resolved]
